FAERS Safety Report 5501413-7 (Version None)
Quarter: 2007Q4

REPORT INFORMATION
  Report Type: 
  Country: None (occurrence: None)
  Receive Date: 20071026
  Receipt Date: 20071026
  Transmission Date: 20080405
  Serious: Yes (Death, Hospitalization)
  Sender: FDA-Public Use
  Company Number: None

PATIENT
  Sex: Male
  Weight: 74.3 kg

DRUGS (14)
  1. CARBOPLATIN [Suspect]
     Dosage: 6 MG
  2. TAXOL [Suspect]
     Dosage: 200 MG
  3. ALBUTEROL [Concomitant]
  4. CALCIUM [Concomitant]
  5. ERTAPENEM [Concomitant]
  6. HEPARIN [Concomitant]
  7. HYDROCODONE BITARTRATE [Concomitant]
  8. IPRATROPIUM BROMIDE [Concomitant]
  9. MIRTAZAPINE [Concomitant]
  10. OMEPRAZOLE [Concomitant]
  11. OXYCODONE HCL [Concomitant]
  12. SENNA [Concomitant]
  13. VITAMIN D [Concomitant]
  14. VORICONAZOLE [Concomitant]

REACTIONS (4)
  - LUNG ABSCESS [None]
  - PNEUMOTHORAX [None]
  - PYREXIA [None]
  - RESPIRATORY DISTRESS [None]
